FAERS Safety Report 13015602 (Version 8)
Quarter: 2017Q1

REPORT INFORMATION
  Report Type: Report from Study
  Country: KR (occurrence: KR)
  Receive Date: 20161212
  Receipt Date: 20170222
  Transmission Date: 20170428
  Serious: Yes (Hospitalization)
  Sender: FDA-Public Use
  Company Number: KR-ROCHE-1859332

PATIENT
  Age: 48 Year
  Sex: Female
  Weight: 59.8 kg

DRUGS (21)
  1. CHLORPHENIRAMINE. [Concomitant]
     Active Substance: CHLORPHENIRAMINE
     Dosage: INDICATION PREMEDICATION FOR TRANSFUSION
     Route: 065
     Dates: start: 20161123, end: 20161123
  2. RO 5503781 (MDM2 ANTAGONIST) [Suspect]
     Active Substance: IDASANUTLIN
     Indication: NON-HODGKIN^S LYMPHOMA
     Dosage: DATE OF MOST RECENT DOSE PRIOR TO SAES: 28/OCT/2016 (200MG)
     Route: 048
     Dates: start: 20161024
  3. MORPHINE HCL [Concomitant]
     Active Substance: MORPHINE HYDROCHLORIDE
     Indication: TOOTH EXTRACTION
  4. OBINUTUZUMAB [Suspect]
     Active Substance: OBINUTUZUMAB
     Indication: NON-HODGKIN^S LYMPHOMA
     Dosage: DATE OF MOST RECENT DOSE PRIOR TO SAES: 07/NOV/2016 (1000MG)?DATE OF MOST RECENT DOSE PRIOR TO NEUTR
     Route: 042
     Dates: start: 20161024
  5. CORTISOLU [Concomitant]
     Active Substance: HYDROCORTISONE SODIUM SUCCINATE
     Dosage: INDICATION PREMEDICATION FOR TRANSFUSION
     Route: 065
     Dates: start: 20161128, end: 20161128
  6. CORTISOLU [Concomitant]
     Active Substance: HYDROCORTISONE SODIUM SUCCINATE
     Dosage: INDICATION PREMEDICATION FOR TRANSFUSION
     Route: 065
     Dates: start: 20161207
  7. SULFAMETHOXAZOLE/TRIMETHOPRIM [Concomitant]
     Active Substance: SULFAMETHOXAZOLE\TRIMETHOPRIM
     Indication: INFECTION
     Dosage: SULFAMETHOXAZOLE 400MG/TRIMETHOPRIM 80MG
     Route: 065
     Dates: start: 20161213
  8. CHLORPHENIRAMINE. [Concomitant]
     Active Substance: CHLORPHENIRAMINE
     Dosage: INDICATION PREMEDICATION FOR TRANSFUSION
     Route: 065
     Dates: start: 20161128, end: 20161128
  9. CHLORPHENIRAMINE. [Concomitant]
     Active Substance: CHLORPHENIRAMINE
     Route: 065
     Dates: start: 20161207
  10. CEFEPIME [Concomitant]
     Active Substance: CEFEPIME HYDROCHLORIDE
     Indication: INFECTION
     Route: 065
     Dates: start: 20161213
  11. MGSO4 [Concomitant]
     Active Substance: MAGNESIUM SULFATE
     Indication: HYPOMAGNESAEMIA
     Route: 065
     Dates: start: 20161210, end: 20161213
  12. CORTISOLU [Concomitant]
     Active Substance: HYDROCORTISONE SODIUM SUCCINATE
     Dosage: INDICATION PREMEDICATION FOR TRANSFUSION
     Route: 065
     Dates: start: 20161123, end: 20161123
  13. UROKINASE [Concomitant]
     Active Substance: UROKINASE
     Route: 065
     Dates: start: 20161216, end: 20161216
  14. HEPARIN [Concomitant]
     Active Substance: HEPARIN SODIUM
     Dosage: INDICATION KEEP PATENCY OF HICKMEN CATHETER
     Route: 065
  15. KETOPROFEN. [Concomitant]
     Active Substance: KETOPROFEN
     Indication: MYALGIA
     Route: 065
     Dates: start: 20161216, end: 20161216
  16. ACECLOFENAC [Concomitant]
     Active Substance: ACECLOFENAC
     Dosage: INDICTAION BASELINE DISEASE(LYMPHOMA)
     Route: 065
     Dates: start: 20161207
  17. RANITIDINE. [Concomitant]
     Active Substance: RANITIDINE
     Indication: GASTRIC ULCER
     Route: 065
     Dates: start: 20161208
  18. ONDANSETRON [Concomitant]
     Active Substance: ONDANSETRON
     Indication: PREMEDICATION
     Route: 065
     Dates: start: 20161215
  19. DEXAMETHASONE. [Concomitant]
     Active Substance: DEXAMETHASONE
     Dosage: INDICTAION BASELINE DISEASE(LYMPHOMA)
     Route: 065
     Dates: start: 20161207
  20. MORPHINE HCL [Concomitant]
     Active Substance: MORPHINE HYDROCHLORIDE
     Indication: PAIN
     Route: 065
     Dates: start: 20161215, end: 20161215
  21. GEMCITABINE [Concomitant]
     Active Substance: GEMCITABINE\GEMCITABINE HYDROCHLORIDE
     Indication: CHEMOTHERAPY

REACTIONS (4)
  - Neutropenia [Recovered/Resolved]
  - Pancytopenia [Recovered/Resolved]
  - Febrile neutropenia [Recovered/Resolved]
  - Thrombocytopenia [Recovered/Resolved]

NARRATIVE: CASE EVENT DATE: 20161123
